FAERS Safety Report 8263361-1 (Version None)
Quarter: 2012Q2

REPORT INFORMATION
  Report Type: 
  Country: None (occurrence: None)
  Receive Date: 20120405
  Receipt Date: 20120328
  Transmission Date: 20120825
  Serious: Yes (Other)
  Sender: FDA-Public Use
  Company Number: US-ABBOTT-12P-163-0919644-00

PATIENT
  Sex: Male

DRUGS (1)
  1. HUMIRA [Suspect]
     Indication: CROHN'S DISEASE
     Dosage: 4 PENS SUBQ DAY 1, 2 PENS DAY 15, 40 EOW
     Dates: start: 20111201

REACTIONS (2)
  - COLONIC STENOSIS [None]
  - WOUND INFECTION [None]
